FAERS Safety Report 9961330 (Version 5)
Quarter: 2014Q2

REPORT INFORMATION
  Report Type: Spontaneous
  Country: IT (occurrence: IT)
  Receive Date: 20140305
  Receipt Date: 20140604
  Transmission Date: 20141212
  Serious: Yes (Other)
  Sender: FDA-Public Use
  Company Number: IT-AMGEN-ITASP2014015038

PATIENT
  Age: 44 Year
  Sex: Male
  Weight: 68 kg

DRUGS (3)
  1. VECTIBIX [Suspect]
     Indication: COLON CANCER
     Dosage: 300 MG, CYCLIC
     Route: 042
  2. ACETAMINOPHEN [Concomitant]
     Indication: PAIN
     Dosage: 4000 MG, UNK
     Route: 048
     Dates: start: 20120101, end: 20140207
  3. NIMESULIDE [Concomitant]
     Indication: PAIN
     Dosage: UNK
     Route: 048
     Dates: start: 20120101, end: 20140207

REACTIONS (11)
  - Dysgeusia [Recovered/Resolved]
  - Chest pain [Recovering/Resolving]
  - Erythema [Recovering/Resolving]
  - Ageusia [Recovered/Resolved]
  - Epistaxis [Unknown]
  - Dermatitis acneiform [Recovered/Resolved]
  - Skin fissures [Unknown]
  - Scab [Unknown]
  - Pruritus [Unknown]
  - Skin toxicity [Unknown]
  - Skin exfoliation [Not Recovered/Not Resolved]
